FAERS Safety Report 17941423 (Version 1)
Quarter: 2020Q2

REPORT INFORMATION
  Report Type: Spontaneous
  Country: US (occurrence: US)
  Receive Date: 20200624
  Receipt Date: 20200624
  Transmission Date: 20200714
  Serious: Yes (Hospitalization)
  Sender: FDA-Public Use
  Company Number: None

PATIENT
  Age: 48 Year
  Sex: Male
  Weight: 78 kg

DRUGS (1)
  1. FERRLECIT [Suspect]
     Active Substance: SODIUM FERRIC GLUCONATE COMPLEX
     Indication: ANAEMIA
     Route: 042

REACTIONS (7)
  - Urticaria [None]
  - Hypersensitivity [None]
  - Feeling hot [None]
  - Nausea [None]
  - Hypotension [None]
  - Abdominal pain [None]
  - Anaphylactic reaction [None]

NARRATIVE: CASE EVENT DATE: 20200611
